FAERS Safety Report 7405938-9 (Version None)
Quarter: 2011Q2

REPORT INFORMATION
  Report Type: 
  Country: None (occurrence: None)
  Receive Date: 20110401
  Receipt Date: 20100819
  Transmission Date: 20111010
  Serious: Yes (Other)
  Sender: FDA-Public Use
  Company Number: 2011MA002842

PATIENT
  Age: 55 Year
  Sex: Male

DRUGS (5)
  1. PACLITAXEL [Suspect]
     Indication: CHEMOTHERAPY
     Dosage: 160 MG; ; IV
     Route: 042
     Dates: start: 20100729, end: 20100729
  2. BEVACIZUMAB [Concomitant]
  3. DEXAMETHASONE [Concomitant]
  4. CHLORPHENAMINE [Concomitant]
  5. RANITIDINE [Concomitant]

REACTIONS (2)
  - DYSPNOEA [None]
  - LOSS OF CONSCIOUSNESS [None]
